FAERS Safety Report 6339593-6 (Version None)
Quarter: 2009Q3

REPORT INFORMATION
  Report Type: 
  Country: None (occurrence: None)
  Receive Date: 20090903
  Receipt Date: 20090831
  Transmission Date: 20100115
  Serious: Yes (Hospitalization)
  Sender: FDA-Public Use
  Company Number: US-BRISTOL-MYERS SQUIBB COMPANY-14742266

PATIENT
  Age: 11 Year
  Sex: Female
  Weight: 68 kg

DRUGS (9)
  1. WARFARIN SODIUM [Suspect]
     Dosage: CONTINUED IWTH 0.05MG/KG/D INCRASED TO 1MG/KG/D AND TO 7MG/KG/D.
     Route: 048
  2. UNFRACTIONATED HEPARIN [Suspect]
     Dosage: INITIATED AT 70 UNITS/KG, THEN 18 UNITS/KG/HR CONT. INF, THEN LOWERED TO 10UNITS/KG/HR
     Route: 040
  3. ENOXAPARIN SODIUM [Suspect]
  4. FONDAPARINUX SODIUM [Suspect]
     Route: 058
  5. ANGIOMAX [Suspect]
     Indication: THROMBOSIS PROPHYLAXIS
     Dosage: FORM = INJ STARTED WITH 140 MCG/KG/HR, INCREASED TO 240 MCG/KG/HR
     Route: 040
  6. CEFAZOLIN [Concomitant]
  7. RANITIDINE [Concomitant]
  8. CHLORAL HYDRATE [Concomitant]
     Dosage: 1 DOSAGEFORM = 1 DOSE
  9. TISSUE PLASMINOGEN ACTIVATOR RECOMB [Concomitant]
     Dosage: TOTAL DOSE OF 1MG/HR(0.015MG/KG/HR)

REACTIONS (4)
  - DEEP VEIN THROMBOSIS [None]
  - INTERNATIONAL NORMALISED RATIO INCREASED [None]
  - RENAL VEIN THROMBOSIS [None]
  - VENA CAVA THROMBOSIS [None]
